FAERS Safety Report 21767250 (Version 2)
Quarter: 2023Q1

REPORT INFORMATION
  Report Type: Spontaneous
  Country: PL (occurrence: PL)
  Receive Date: 20221222
  Receipt Date: 20230104
  Transmission Date: 20230417
  Serious: Yes (Death, Other)
  Sender: FDA-Public Use
  Company Number: PL-POLPHARMA-006518

PATIENT
  Sex: Male
  Weight: 55 kg

DRUGS (2)
  1. MORPHINE SULFATE [Suspect]
     Active Substance: MORPHINE SULFATE
     Indication: Product used for unknown indication
     Dosage: 10 MILLIGRAM
     Route: 065
  2. BACLOFEN [Suspect]
     Active Substance: BACLOFEN
     Indication: Muscle spasticity
     Dosage: 25-10-25 MG
     Route: 065

REACTIONS (6)
  - Death [Fatal]
  - Loss of consciousness [Fatal]
  - Malaise [Fatal]
  - Pyrexia [Fatal]
  - Pneumonia [Fatal]
  - Product use issue [Unknown]
